FAERS Safety Report 13036234 (Version 3)
Quarter: 2017Q1

REPORT INFORMATION
  Report Type: Report from Study
  Country: None (occurrence: BR)
  Receive Date: 20161216
  Receipt Date: 20170114
  Transmission Date: 20170428
  Serious: Yes (Other)
  Sender: FDA-Public Use
  Company Number: BR-ABBVIE-16P-020-1813254-00

PATIENT
  Age: 80 Year
  Sex: Female
  Weight: 44 kg

DRUGS (15)
  1. NOOTROPIL [Concomitant]
     Active Substance: PIRACETAM
     Indication: PRODUCT USED FOR UNKNOWN INDICATION
  2. ISKEMIL [Concomitant]
     Active Substance: DIHYDROERGOCRISTINE MESYLATE
     Indication: CEREBROVASCULAR ACCIDENT
     Dosage: DAILY DOSE:6 MG;^1^ IN THE MORNING
  3. ISKEMIL [Concomitant]
     Active Substance: DIHYDROERGOCRISTINE MESYLATE
     Indication: PRODUCT USED FOR UNKNOWN INDICATION
  4. SYNTHROID [Suspect]
     Active Substance: LEVOTHYROXINE SODIUM
     Dosage: ALTERNATES WITH 50MCG
     Route: 048
     Dates: start: 2001
  5. CEFALIUM [Concomitant]
     Indication: HEADACHE
     Dosage: WHEN PRESENTS HEADACHE
  6. SYNTHROID [Suspect]
     Active Substance: LEVOTHYROXINE SODIUM
     Dosage: 50 MCG;INTERCALATED WITH 50 MCG
     Route: 048
     Dates: start: 201608
  7. NOOTROPIL [Concomitant]
     Active Substance: PIRACETAM
     Indication: CEREBROVASCULAR ACCIDENT
     Dosage: DAILY DOSE:1600 MG;^1^ IN THE MORNING/ ^1^ AT NIGHT
  8. SYNTHROID [Suspect]
     Active Substance: LEVOTHYROXINE SODIUM
     Dosage: 75 MCG; INTERCALATED WITH 50 MCG
     Route: 048
     Dates: start: 201608
  9. SYNTHROID [Suspect]
     Active Substance: LEVOTHYROXINE SODIUM
     Dosage: ALTERNATES WITH 75MCG
     Route: 048
     Dates: start: 2001
  10. CLINFAR [Concomitant]
     Active Substance: SIMVASTATIN
     Indication: BLOOD CHOLESTEROL
     Dosage: DAILY DOSE: 10MG;^1^ AT NIGHT
  11. VITAMIN E [Concomitant]
     Active Substance: .ALPHA.-TOCOPHEROL
     Indication: ANTIOXIDANT THERAPY
     Dosage: FREQUENCY: ^1^ IN THE MORNING/ ^1^ AT NIGHT
  12. LINSEED [Concomitant]
     Indication: EYE DISORDER
     Dosage: FREQUENCY: ^1^ A DAY
  13. DORMONID [Concomitant]
     Active Substance: MIDAZOLAM MALEATE
     Indication: SLEEP DISORDER THERAPY
     Dosage: DAILY DOSE: 15 MG;^1^ BEFORE SLEEP
  14. SYNTHROID [Suspect]
     Active Substance: LEVOTHYROXINE SODIUM
     Indication: HYPOTHYROIDISM
     Route: 065
     Dates: start: 201608
  15. ACETYLCYSTEINE. [Suspect]
     Active Substance: ACETYLCYSTEINE
     Indication: PRODUCTIVE COUGH
     Dosage: UNIT DOSE: POWDER,  ^1^ DOSE; AT NIGHT
     Route: 065
     Dates: start: 20161208, end: 20161208

REACTIONS (14)
  - Alopecia [Not Recovered/Not Resolved]
  - Bone disorder [Recovering/Resolving]
  - Malaise [Recovered/Resolved]
  - Thyroxine abnormal [Unknown]
  - Glaucoma [Recovered/Resolved with Sequelae]
  - Blood thyroid stimulating hormone abnormal [Unknown]
  - Cataract [Recovering/Resolving]
  - Eye discharge [Recovering/Resolving]
  - Lacrimation increased [Recovered/Resolved]
  - Cough [Recovered/Resolved]
  - Blood pressure decreased [Not Recovered/Not Resolved]
  - Weight increased [Not Recovered/Not Resolved]
  - Hypertensive crisis [Recovered/Resolved]
  - Product use issue [Recovered/Resolved]

NARRATIVE: CASE EVENT DATE: 2007
